FAERS Safety Report 9462945 (Version 2)
Quarter: 2013Q3

REPORT INFORMATION
  Report Type: Spontaneous
  Country: US (occurrence: US)
  Receive Date: 20130816
  Receipt Date: 20130816
  Transmission Date: 20140515
  Serious: Yes (Hospitalization, Other)
  Sender: FDA-Public Use
  Company Number: US-ASTRAZENECA-2010SE44008

PATIENT
  Age: 58 Year
  Sex: Male
  Weight: 90.7 kg

DRUGS (16)
  1. NEXIUM [Suspect]
     Indication: DYSPEPSIA
     Route: 048
     Dates: start: 2005, end: 2011
  2. NEXIUM [Suspect]
     Indication: GASTROOESOPHAGEAL REFLUX DISEASE
     Route: 048
     Dates: start: 2005, end: 2011
  3. OMEPRAZOLE [Suspect]
     Indication: GASTROOESOPHAGEAL REFLUX DISEASE
     Route: 048
     Dates: start: 2011
  4. LOPRESSOR [Concomitant]
     Indication: HYPERTENSION
     Dosage: ONE TABLET BID
     Dates: start: 2009
  5. RANEXA [Concomitant]
  6. ZOCOR [Concomitant]
     Indication: BLOOD CHOLESTEROL
     Dosage: ONE TABLET DAILY
     Dates: start: 2009
  7. LYRICA [Concomitant]
     Indication: NEURALGIA
     Route: 048
     Dates: start: 2010
  8. LYRICA [Concomitant]
     Indication: HEADACHE
     Route: 048
     Dates: start: 2010
  9. FLOMAX [Concomitant]
  10. REGLAN [Concomitant]
  11. BACLOFEN [Concomitant]
  12. DEPAKOTE [Concomitant]
  13. MIDRIN [Concomitant]
  14. VICODIN [Concomitant]
  15. CELEBREX [Concomitant]
     Indication: OSTEOARTHRITIS
     Route: 048
  16. TRAMADOL [Concomitant]
     Indication: HEADACHE
     Dosage: SIX TABLETS/ DAY
     Route: 048
     Dates: start: 2012

REACTIONS (9)
  - Brain neoplasm benign [Recovered/Resolved with Sequelae]
  - Chest pain [Unknown]
  - Musculoskeletal discomfort [Unknown]
  - Hypertension [Unknown]
  - Blood cholesterol increased [Unknown]
  - Headache [Not Recovered/Not Resolved]
  - Diarrhoea [Unknown]
  - Intentional drug misuse [Recovered/Resolved]
  - Drug ineffective [Unknown]
